FAERS Safety Report 8517962 (Version 3)
Quarter: 2014Q2

REPORT INFORMATION
  Report Type: Spontaneous
  Country: US (occurrence: US)
  Receive Date: 20120417
  Receipt Date: 20140522
  Transmission Date: 20141212
  Serious: Yes (Death)
  Sender: FDA-Public Use
  Company Number: US-ASTRAZENECA-2011SE34353

PATIENT
  Age: 65 Year
  Sex: Female

DRUGS (7)
  1. NEXIUM [Suspect]
     Dosage: DAILY
     Route: 048
  2. NEXIUM [Suspect]
     Dosage: TWO TIMES A DAY
     Route: 048
  3. NEXIUM [Suspect]
     Route: 048
  4. NEXIUM [Suspect]
     Route: 048
  5. NEXIUM [Suspect]
     Route: 048
  6. ADVAIR [Suspect]
     Route: 065
  7. PROVENTIL [Concomitant]

REACTIONS (6)
  - Death [Fatal]
  - Chronic obstructive pulmonary disease [Unknown]
  - Throat irritation [Unknown]
  - Nausea [Unknown]
  - Abdominal discomfort [Recovered/Resolved]
  - Intentional product misuse [Unknown]
